FAERS Safety Report 15605107 (Version 1)
Quarter: 2018Q4

REPORT INFORMATION
  Report Type: Spontaneous
  Country: US (occurrence: US)
  Receive Date: 20181112
  Receipt Date: 20181112
  Transmission Date: 20190205
  Serious: No
  Sender: FDA-Public Use
  Company Number: US-ELI_LILLY_AND_COMPANY-US201811002442

PATIENT
  Sex: Male

DRUGS (2)
  1. HUMALOG [Suspect]
     Active Substance: INSULIN LISPRO
     Indication: PRODUCT USED FOR UNKNOWN INDICATION
     Dosage: UNK UNK, EACH EVENING (AT DINNER)
     Route: 065
  2. LANTUS [Suspect]
     Active Substance: INSULIN GLARGINE
     Indication: PRODUCT USED FOR UNKNOWN INDICATION
     Dosage: 100 U, EACH EVENING (80-100 UNITS AT DINNER)
     Route: 065

REACTIONS (6)
  - Hyperhidrosis [Unknown]
  - Visual impairment [Unknown]
  - Blood glucose increased [Unknown]
  - Tremor [Unknown]
  - Chills [Unknown]
  - Sleep disorder due to a general medical condition [Unknown]
